FAERS Safety Report 8212555-X (Version None)
Quarter: 2012Q1

REPORT INFORMATION
  Report Type: 
  Country: None (occurrence: None)
  Receive Date: 20120315
  Receipt Date: 20120307
  Transmission Date: 20120608
  Serious: Yes (Other)
  Sender: FDA-Public Use
  Company Number: US-US-EMD SERONO, INC.-7019540

PATIENT
  Sex: Female

DRUGS (6)
  1. LEXAPRO [Concomitant]
     Indication: DEPRESSION
     Route: 048
  2. GELNIQUE [Concomitant]
     Indication: MICTURITION URGENCY
  3. RITALIN [Concomitant]
     Indication: PRODUCT USED FOR UNKNOWN INDICATION
  4. VESICARE [Concomitant]
     Indication: MICTURITION URGENCY
  5. NORCO [Concomitant]
     Indication: PRODUCT USED FOR UNKNOWN INDICATION
  6. REBIF [Suspect]
     Indication: MULTIPLE SCLEROSIS
     Dates: end: 20090101

REACTIONS (1)
  - LOWER LIMB FRACTURE [None]
